FAERS Safety Report 4609795-5 (Version None)
Quarter: 2005Q1

REPORT INFORMATION
  Report Type: 
  Country: None (occurrence: None)
  Receive Date: 20050314
  Receipt Date: 20050307
  Transmission Date: 20050727
  Serious: Yes (Hospitalization)
  Sender: FDA-Public Use
  Company Number: HQWYE876508MAR05

PATIENT
  Age: 42 Year
  Sex: Female

DRUGS (4)
  1. CEFSPAN (CEFIXIME,) [Suspect]
     Indication: NASOPHARYNGITIS
     Dosage: 100 MG TWICE DAILY ORAL
     Route: 048
     Dates: start: 20050224, end: 20050224
  2. LOXONIN (LOXOPROFEN SODIUM) [Concomitant]
  3. CALONAL (PARACETAMOL) [Concomitant]
  4. MUCOSTA (REBAMIPIDE) [Concomitant]

REACTIONS (1)
  - DRUG ERUPTION [None]
